FAERS Safety Report 20175214 (Version 2)
Quarter: 2022Q1

REPORT INFORMATION
  Report Type: Spontaneous
  Country: JP (occurrence: JP)
  Receive Date: 20211213
  Receipt Date: 20220202
  Transmission Date: 20220423
  Serious: Yes (Hospitalization, Other)
  Sender: FDA-Public Use
  Company Number: JP-BAYER-2021A247649

PATIENT
  Age: 54 Year
  Sex: Female
  Weight: 53.8 kg

DRUGS (4)
  1. IOPROMIDE [Suspect]
     Active Substance: IOPROMIDE
     Indication: Chest pain
     Dosage: 55 ML, ONCE,3.7ML/SEC
     Route: 042
     Dates: start: 20211108, end: 20211108
  2. IOPROMIDE [Suspect]
     Active Substance: IOPROMIDE
     Indication: Palpitations
  3. IOPROMIDE [Suspect]
     Active Substance: IOPROMIDE
     Indication: Computerised tomogram
  4. LANDIOLOL HYDROCHLORIDE [Suspect]
     Active Substance: LANDIOLOL HYDROCHLORIDE
     Dosage: 5.5 ML, ONCE
     Dates: start: 20211108, end: 20211108

REACTIONS (7)
  - Loss of consciousness [Recovered/Resolved]
  - Tonic convulsion [Recovered/Resolved]
  - Unresponsive to stimuli [Recovered/Resolved]
  - Epilepsy [Recovering/Resolving]
  - Dysarthria [Recovered/Resolved]
  - Headache [Recovered/Resolved]
  - Ataxia [Recovered/Resolved]

NARRATIVE: CASE EVENT DATE: 20211108
